FAERS Safety Report 25447554 (Version 1)
Quarter: 2025Q2

REPORT INFORMATION
  Report Type: Spontaneous
  Country: US (occurrence: US)
  Receive Date: 20250617
  Receipt Date: 20250617
  Transmission Date: 20250717
  Serious: Yes (Hospitalization, Other)
  Sender: PFIZER
  Company Number: US-PFIZER INC-PV202500068428

PATIENT
  Age: 61 Year
  Sex: Female

DRUGS (3)
  1. MICRONASE [Suspect]
     Active Substance: GLYBURIDE
  2. MINIPRESS [Suspect]
     Active Substance: PRAZOSIN HYDROCHLORIDE
     Indication: Hypertension
  3. PROCARDIA [Concomitant]
     Active Substance: NIFEDIPINE
     Indication: Hypertension

REACTIONS (4)
  - Product dispensing error [Recovered/Resolved]
  - Wrong product administered [Recovered/Resolved]
  - Acute psychosis [Recovered/Resolved]
  - Hypoglycaemia [Recovered/Resolved]
